FAERS Safety Report 19882040 (Version 2)
Quarter: 2021Q4

REPORT INFORMATION
  Report Type: Spontaneous
  Country: PL (occurrence: PL)
  Receive Date: 20210924
  Receipt Date: 20211002
  Transmission Date: 20220303
  Serious: No
  Sender: FDA-Public Use
  Company Number: PL-LUPIN PHARMACEUTICALS INC.-2021-17979

PATIENT
  Age: 61 Year
  Sex: Male

DRUGS (5)
  1. ATORVASTATIN CALCIUM [Interacting]
     Active Substance: ATORVASTATIN CALCIUM
     Indication: Dyslipidaemia
     Dosage: UNK
     Route: 065
  2. IVABRADINE [Interacting]
     Active Substance: IVABRADINE
     Indication: Coronary artery disease
     Dosage: UNK
     Route: 065
  3. IVABRADINE [Interacting]
     Active Substance: IVABRADINE
     Indication: Sinus tachycardia
  4. DILTIAZEM [Interacting]
     Active Substance: DILTIAZEM
     Indication: Sinus tachycardia
     Dosage: UNK
     Route: 065
  5. DILTIAZEM [Interacting]
     Active Substance: DILTIAZEM
     Indication: Coronary artery disease

REACTIONS (4)
  - Dizziness [Recovering/Resolving]
  - Drug interaction [Unknown]
  - Contraindicated product administered [Unknown]
  - Drug level increased [Recovering/Resolving]
